FAERS Safety Report 9965347 (Version 1)
Quarter: 2014Q1

REPORT INFORMATION
  Report Type: Spontaneous
  Country: US (occurrence: US)
  Receive Date: 20140305
  Receipt Date: 20140305
  Transmission Date: 20141002
  Serious: No
  Sender: FDA-Public Use
  Company Number: US-ABBVIE-13P-163-1124287-00

PATIENT
  Age: 21 Year
  Sex: Female
  Weight: 40.86 kg

DRUGS (17)
  1. HUMIRA [Suspect]
     Indication: RHEUMATOID ARTHRITIS
     Dates: start: 201305
  2. VITAMIN D [Concomitant]
     Indication: PRODUCT USED FOR UNKNOWN INDICATION
  3. HYDROXYCHLOROQUINE [Concomitant]
     Indication: SYSTEMIC LUPUS ERYTHEMATOSUS
  4. METHOTREXATE [Concomitant]
     Indication: SYSTEMIC LUPUS ERYTHEMATOSUS
  5. METHOTREXATE [Concomitant]
     Indication: SWELLING
  6. GABAPENTIN [Concomitant]
     Indication: PAIN
  7. GABAPENTIN [Concomitant]
     Indication: MUSCLE TWITCHING
  8. PREDNISONE [Concomitant]
     Indication: LOCAL SWELLING
  9. FOSAMAX [Concomitant]
     Indication: SUPPLEMENTATION THERAPY
  10. MULTIVITAMIN [Concomitant]
     Indication: PRODUCT USED FOR UNKNOWN INDICATION
  11. FENTANYL [Concomitant]
     Indication: PAIN
     Route: 062
     Dates: end: 201210
  12. FENTANYL [Concomitant]
     Route: 062
     Dates: start: 201210
  13. BACLOFEN [Concomitant]
     Indication: PAIN
  14. EFFEXOR [Concomitant]
     Indication: DEPRESSION
  15. LORAZEPAM [Concomitant]
     Indication: ANXIETY
  16. ADDERALL [Concomitant]
     Indication: SUPPLEMENTATION THERAPY
  17. CALTRATE [Concomitant]
     Indication: SUPPLEMENTATION THERAPY

REACTIONS (4)
  - Cough [Recovered/Resolved]
  - Dyspnoea [Recovered/Resolved]
  - Arthralgia [Unknown]
  - Fatigue [Unknown]
